FAERS Safety Report 20974155 (Version 4)
Quarter: 2022Q3

REPORT INFORMATION
  Report Type: Report from Study
  Country: CN (occurrence: CN)
  Receive Date: 20220617
  Receipt Date: 20220831
  Transmission Date: 20221027
  Serious: Yes (Hospitalization, Other)
  Sender: FDA-Public Use
  Company Number: CN-ELI_LILLY_AND_COMPANY-CN201902007667

PATIENT
  Age: 56 Year
  Sex: Female
  Weight: 65 kg

DRUGS (14)
  1. HUMALOG [Suspect]
     Active Substance: INSULIN LISPRO
     Indication: Type 1 diabetes mellitus
     Dosage: 4 U, TID
     Route: 058
     Dates: start: 2016
  2. HUMALOG [Suspect]
     Active Substance: INSULIN LISPRO
     Dosage: 4 U, BID
     Route: 058
  3. HUMALOG [Suspect]
     Active Substance: INSULIN LISPRO
     Dosage: 6 U, EACH EVENING
     Route: 058
  4. HUMALOG [Suspect]
     Active Substance: INSULIN LISPRO
     Dosage: 9 U, UNKNOWN
     Route: 058
     Dates: start: 20201019
  5. HUMALOG [Suspect]
     Active Substance: INSULIN LISPRO
     Dosage: 10 U, UNKNOWN
     Route: 058
     Dates: start: 20201019
  6. HUMALOG [Suspect]
     Active Substance: INSULIN LISPRO
     Dosage: UNK UNK, UNKNOWN
     Route: 065
  7. HUMALOG [Suspect]
     Active Substance: INSULIN LISPRO
     Dosage: 3 U, TID
     Route: 058
     Dates: start: 201812
  8. HUMALOG [Suspect]
     Active Substance: INSULIN LISPRO
     Dosage: BASIC DOSE 17-18 UNITS, UNKNOWN
     Route: 058
  9. HUMALOG [Suspect]
     Active Substance: INSULIN LISPRO
     Dosage: 17 U, UNKNOWN (INCREASED 9 U DURING MEALS BASIC DOSAGE 16-17 UNITS)
     Route: 058
  10. HUMALOG [Suspect]
     Active Substance: INSULIN LISPRO
     Dosage: 3.5 U, TID
     Route: 058
  11. ADALAT [Concomitant]
     Active Substance: NIFEDIPINE
     Indication: Hypertension
     Dosage: 1 DOSAGE FORM, BID
     Route: 048
  12. CARVEDILOL [Concomitant]
     Active Substance: CARVEDILOL
     Indication: Hypertension
     Dosage: 1 DOSAGE FORM, EACH MORNING
     Route: 065
  13. CARVEDILOL [Concomitant]
     Active Substance: CARVEDILOL
     Dosage: 2 DOSAGE FORM, NOON
     Route: 065
  14. CARVEDILOL [Concomitant]
     Active Substance: CARVEDILOL
     Dosage: 1 DOSAGE FORM, EACH EVENING
     Route: 065

REACTIONS (31)
  - Blood glucose increased [Recovering/Resolving]
  - Blood pressure increased [Recovering/Resolving]
  - Blood glucose increased [Unknown]
  - Blood glucose fluctuation [Unknown]
  - Diabetic nephropathy [Unknown]
  - Feeding disorder [Unknown]
  - Discomfort [Unknown]
  - Ketosis [Unknown]
  - Diarrhoea [Unknown]
  - Malaise [Unknown]
  - Swelling [Unknown]
  - Peripheral swelling [Recovering/Resolving]
  - Retinopathy [Unknown]
  - Weight decreased [Not Recovered/Not Resolved]
  - Hypertension [Unknown]
  - Blood glucose increased [Recovering/Resolving]
  - Blood glucose increased [Not Recovered/Not Resolved]
  - Protein urine present [Unknown]
  - Headache [Unknown]
  - Malaise [Unknown]
  - Hypoacusis [Unknown]
  - Blood glucose increased [Unknown]
  - Azotaemia [Unknown]
  - Blood glucose increased [Unknown]
  - Fluid retention [Unknown]
  - Blood glucose decreased [Recovered/Resolved]
  - Hypoglycaemia [Unknown]
  - Blood glucose decreased [Unknown]
  - Eye disorder [Unknown]
  - Weight decreased [Unknown]
  - Product dose omission issue [Unknown]

NARRATIVE: CASE EVENT DATE: 20201020
